FAERS Safety Report 8380846-8 (Version None)
Quarter: 2012Q1

REPORT INFORMATION
  Report Type: 
  Country: None (occurrence: None)
  Receive Date: 20120323
  Receipt Date: 20110519
  Transmission Date: 20120608
  Serious: Yes (Other)
  Sender: FDA-Public Use
  Company Number: 163-21880-11040675

PATIENT
  Age: 47 Year
  Sex: Male

DRUGS (7)
  1. REVLIMID [Suspect]
     Indication: MULTIPLE MYELOMA
     Dosage: 25 MG, 1 IN 1 D, PO 25 MG, 1 IN 1 D, PO 10 MG, DAILY FOR 21 DAYS, PO
     Route: 048
     Dates: start: 20091101
  2. REVLIMID [Suspect]
     Indication: MULTIPLE MYELOMA
     Dosage: 25 MG, 1 IN 1 D, PO 25 MG, 1 IN 1 D, PO 10 MG, DAILY FOR 21 DAYS, PO
     Route: 048
     Dates: start: 20080701, end: 20090701
  3. REVLIMID [Suspect]
     Indication: MULTIPLE MYELOMA
     Dosage: 25 MG, 1 IN 1 D, PO 25 MG, 1 IN 1 D, PO 10 MG, DAILY FOR 21 DAYS, PO
     Route: 048
     Dates: start: 20100717
  4. PRILOSEC (OMEPRAZOLE) (UNKNOWN) [Concomitant]
  5. AMBIEN [Concomitant]
  6. ASPIRIN [Concomitant]
  7. ATIVAN [Concomitant]

REACTIONS (1)
  - NEUROPATHY PERIPHERAL [None]
